FAERS Safety Report 13853713 (Version 1)
Quarter: 2017Q3

REPORT INFORMATION
  Report Type: Report from Study
  Country: ES (occurrence: ES)
  Receive Date: 20170809
  Receipt Date: 20170809
  Transmission Date: 20171127
  Serious: Yes (Hospitalization, Other)
  Sender: FDA-Public Use
  Company Number: ES-SHIRE-ES201717145

PATIENT

DRUGS (4)
  1. IDURSULFASE [Suspect]
     Active Substance: IDURSULFASE
     Indication: MUCOPOLYSACCHARIDOSIS II
     Dosage: 0.5 MG/KG, 1X/2WKS
     Route: 065
     Dates: start: 20150519
  2. ABILIFY [Concomitant]
     Active Substance: ARIPIPRAZOLE
     Indication: ATTENTION DEFICIT/HYPERACTIVITY DISORDER
  3. ELVANSE [Concomitant]
     Active Substance: LISDEXAMFETAMINE DIMESYLATE
     Indication: ATTENTION DEFICIT/HYPERACTIVITY DISORDER
  4. RISPERIDONE. [Concomitant]
     Active Substance: RISPERIDONE
     Indication: NERVOUS SYSTEM DISORDER

REACTIONS (3)
  - External fixation of fracture [Recovered/Resolved with Sequelae]
  - Chondroplasty [Recovered/Resolved with Sequelae]
  - Osteotomy [Recovered/Resolved with Sequelae]

NARRATIVE: CASE EVENT DATE: 20160526
